FAERS Safety Report 5195255-2 (Version None)
Quarter: 2006Q4

REPORT INFORMATION
  Report Type: 
  Country: None (occurrence: None)
  Receive Date: 20061229
  Receipt Date: 20061114
  Transmission Date: 20070319
  Serious: Yes (Disabling, Other)
  Sender: FDA-Public Use
  Company Number: IE-PFIZER INC-2006142380

PATIENT
  Age: 63 Year
  Sex: Male
  Weight: 80 kg

DRUGS (4)
  1. ISTIN [Suspect]
     Indication: HYPERTENSION
     Dates: start: 20060904, end: 20060913
  2. ACE INHIBITORS AND DIURETICS [Concomitant]
     Indication: HYPERTENSION
  3. OLMESARTAN [Concomitant]
     Indication: HYPERTENSION
     Route: 048
  4. ELTROXIN [Concomitant]
     Indication: HYPOTHYROIDISM

REACTIONS (1)
  - RECTAL HAEMORRHAGE [None]
